FAERS Safety Report 11756797 (Version 2)
Quarter: 2015Q4

REPORT INFORMATION
  Report Type: Report from Study
  Country: NL (occurrence: NL)
  Receive Date: 20151120
  Receipt Date: 20151221
  Transmission Date: 20160304
  Serious: Yes (Hospitalization)
  Sender: FDA-Public Use
  Company Number: NL-AMGEN-NLDSL2015121959

PATIENT
  Age: 76 Year
  Sex: Male

DRUGS (1)
  1. NEULASTA [Suspect]
     Active Substance: PEGFILGRASTIM
     Indication: NEUTROPENIA
     Dosage: 10 MG/ML, 1.00 X PER 3 WEKEN
     Route: 058

REACTIONS (3)
  - Pneumonia [Unknown]
  - Hospitalisation [Recovered/Resolved]
  - Upper respiratory tract inflammation [Unknown]

NARRATIVE: CASE EVENT DATE: 20151114
